FAERS Safety Report 13402660 (Version 24)
Quarter: 2020Q1

REPORT INFORMATION
  Report Type: Spontaneous
  Country: US (occurrence: US)
  Receive Date: 20170404
  Receipt Date: 20200319
  Transmission Date: 20200409
  Serious: Yes (Hospitalization, Other)
  Sender: FDA-Public Use
  Company Number: US-ACTELION-A-US2017-150797

PATIENT
  Age: 57 Year
  Sex: Female
  Weight: 45.35 kg

DRUGS (23)
  1. TRIAMCINOLONE ACETONIDE. [Concomitant]
     Active Substance: TRIAMCINOLONE ACETONIDE
     Dosage: 0.1% 2 X DAY
     Route: 061
  2. FLUTICASONE. [Concomitant]
     Active Substance: FLUTICASONE
     Dosage: 50 MCG, QD 1-2 SPRAYS IN EACH NOTRIL
     Route: 045
  3. VELETRI [Suspect]
     Active Substance: EPOPROSTENOL
     Dosage: 55 NG/KG, PER MIN
     Route: 042
  4. METOLAZONE. [Concomitant]
     Active Substance: METOLAZONE
     Dosage: 2.5 MG, QD
     Route: 048
  5. CIPROFLOXACIN. [Concomitant]
     Active Substance: CIPROFLOXACIN
     Dosage: 750 MG, 1 TABLET EVERY WEEK
     Route: 048
  6. VELETRI [Suspect]
     Active Substance: EPOPROSTENOL
     Dosage: 43.4 NG/KG, PER MIN
     Route: 042
  7. OPSUMIT [Suspect]
     Active Substance: MACITENTAN
     Dosage: UNK
     Route: 048
  8. NALOXONE [Concomitant]
     Active Substance: NALOXONE
  9. BUSPAR [Concomitant]
     Active Substance: BUSPIRONE HYDROCHLORIDE
  10. ALPRAZOLAM. [Concomitant]
     Active Substance: ALPRAZOLAM
     Dosage: 1 MG, QD
     Route: 048
  11. FUROSEMIDE. [Concomitant]
     Active Substance: FUROSEMIDE
     Dosage: 80 MG, BID
     Route: 048
  12. FAMOTIDINE. [Concomitant]
     Active Substance: FAMOTIDINE
  13. VELETRI [Suspect]
     Active Substance: EPOPROSTENOL
     Dosage: 31.75 NG/KG, PER MIN
     Route: 042
     Dates: start: 2013
  14. VELETRI [Suspect]
     Active Substance: EPOPROSTENOL
     Dosage: 51 NG/KG, PER MIN
     Route: 042
  15. MORPHINE [Concomitant]
     Active Substance: MORPHINE
     Dosage: 15 MG, 1-2 TABLET S EVERY 6 HOURS
     Route: 048
  16. PAXIL [Concomitant]
     Active Substance: PAROXETINE HYDROCHLORIDE
  17. OPSUMIT [Suspect]
     Active Substance: MACITENTAN
     Indication: PULMONARY ARTERIAL HYPERTENSION
     Dosage: 10 MG, QD
     Route: 048
     Dates: start: 201412
  18. DIGOXIN. [Concomitant]
     Active Substance: DIGOXIN
     Dosage: 125 MCG, QD
     Route: 048
  19. VELETRI [Suspect]
     Active Substance: EPOPROSTENOL
     Indication: PULMONARY ARTERIAL HYPERTENSION
     Dosage: 68 NG/KG, PER MIN
     Route: 042
  20. PAROXETINE. [Concomitant]
     Active Substance: PAROXETINE
     Dosage: 60 MG, QD
     Route: 048
  21. SPIRONOLACTONE. [Concomitant]
     Active Substance: SPIRONOLACTONE
     Dosage: 100 MG, QD
     Route: 048
  22. POTASSIUM CHLORIDE. [Concomitant]
     Active Substance: POTASSIUM CHLORIDE
     Dosage: 10 MEQ, QD 4 TABLETS
     Route: 048
  23. OMEPRAZOLE. [Concomitant]
     Active Substance: OMEPRAZOLE
     Dosage: 20 MG, QD 1 CAPSULE 2 TIMES A DAY FOR 4 WEEKS
     Route: 048

REACTIONS (61)
  - Fluid retention [Unknown]
  - Abdominal pain [Unknown]
  - Clostridium difficile colitis [Unknown]
  - Device leakage [Recovered/Resolved]
  - Chest pain [Unknown]
  - Headache [Unknown]
  - Weight increased [Unknown]
  - Oedema peripheral [Unknown]
  - Malaise [Unknown]
  - Vomiting [Unknown]
  - Frustration tolerance decreased [Unknown]
  - Chest discomfort [Not Recovered/Not Resolved]
  - Right ventricular failure [Recovering/Resolving]
  - Catheter management [Recovered/Resolved]
  - Device breakage [Recovering/Resolving]
  - Nausea [Recovering/Resolving]
  - Therapy non-responder [Unknown]
  - Abdominal pain upper [Unknown]
  - Rash [Unknown]
  - Pyrexia [Unknown]
  - Dyspnoea at rest [Not Recovered/Not Resolved]
  - Ear discomfort [Unknown]
  - Eustachian tube operation [Unknown]
  - Feeling abnormal [Unknown]
  - Myalgia [Not Recovered/Not Resolved]
  - Constipation [Unknown]
  - Pain in jaw [Not Recovered/Not Resolved]
  - Unevaluable event [Not Recovered/Not Resolved]
  - Pulmonary hypertension [Recovering/Resolving]
  - Cholecystitis [Unknown]
  - Weight decreased [Not Recovered/Not Resolved]
  - Pain [Not Recovered/Not Resolved]
  - Presyncope [Unknown]
  - Burning sensation [Unknown]
  - Flushing [Recovering/Resolving]
  - Polyuria [Unknown]
  - Dyspnoea [Unknown]
  - Asthenia [Unknown]
  - Dyspnoea exertional [Not Recovered/Not Resolved]
  - Fatigue [Unknown]
  - Abdominal distension [Unknown]
  - Panic attack [Recovering/Resolving]
  - Cor pulmonale [Unknown]
  - Hypoaesthesia [Unknown]
  - Tremor [Unknown]
  - Pulmonary arterial pressure increased [Unknown]
  - Pulmonary function test decreased [Unknown]
  - Palpitations [Unknown]
  - Condition aggravated [Unknown]
  - Anxiety [Unknown]
  - Claustrophobia [Unknown]
  - Epistaxis [Unknown]
  - Muscle twitching [Unknown]
  - Deafness [Unknown]
  - Pain in extremity [Not Recovered/Not Resolved]
  - Drug dose omission by device [Unknown]
  - Migraine [Not Recovered/Not Resolved]
  - Dry mouth [Unknown]
  - Nasal congestion [Unknown]
  - Dyskinesia [Unknown]
  - Catheter site pruritus [Unknown]

NARRATIVE: CASE EVENT DATE: 20170226
